FAERS Safety Report 9729884 (Version 1)
Quarter: 2013Q4

REPORT INFORMATION
  Report Type: Spontaneous
  Country: DE (occurrence: None)
  Receive Date: 20131203
  Receipt Date: 20131203
  Transmission Date: 20140711
  Serious: Yes (Hospitalization, Other)
  Sender: FDA-Public Use
  Company Number: AUR-APL-2013-09989

PATIENT
  Sex: Female
  Weight: 64 kg

DRUGS (10)
  1. SIMVASTATIN [Suspect]
     Indication: PRODUCT USED FOR UNKNOWN INDICATION
     Dosage: UNKNOWN
     Dates: start: 201310
  2. EXEMESTANE [Suspect]
     Indication: BREAST CANCER METASTATIC
     Dosage: (25 MG, 1 D), ORAL
     Route: 048
     Dates: start: 20130728
  3. GLIBENCLAMIDE [Suspect]
     Indication: DIABETES MELLITUS
     Dosage: (3.5 MG), UNKNOWN
     Dates: start: 201310
  4. AFINITOR [Suspect]
     Indication: BREAST CANCER METASTATIC
     Dosage: (10 MG, 1 D), ORAL
     Route: 048
     Dates: start: 20130728, end: 201310
  5. ELIQUIS (APIXABAN) [Concomitant]
  6. LASIX (FUROSEMIDE) [Concomitant]
  7. DEXAMETHASONE (DEXAMETHASONE) [Concomitant]
  8. L-THYROXIN (LEVOTHYROXINE SODIUM) [Concomitant]
  9. BELOC-ZOC MITE (METOPROLOL SUCCINATE) [Concomitant]
  10. NOVODIGAL (DIGOXIN) [Concomitant]

REACTIONS (25)
  - Muscular weakness [None]
  - Diabetes mellitus [None]
  - Decreased appetite [None]
  - Blood creatine phosphokinase increased [None]
  - Oxygen saturation decreased [None]
  - Platelet count decreased [None]
  - Blood creatine phosphokinase MB increased [None]
  - Troponin I increased [None]
  - Brain natriuretic peptide increased [None]
  - Atrial fibrillation [None]
  - Ventricular hypokinesia [None]
  - Mitral valve sclerosis [None]
  - Mitral valve incompetence [None]
  - Aortic dilatation [None]
  - Tricuspid valve incompetence [None]
  - Aortic valve incompetence [None]
  - Myositis [None]
  - C-reactive protein increased [None]
  - Glomerular filtration rate decreased [None]
  - Aspartate aminotransferase increased [None]
  - Alanine aminotransferase increased [None]
  - Procalcitonin increased [None]
  - Rhabdomyolysis [None]
  - Oedema peripheral [None]
  - Epistaxis [None]
